FAERS Safety Report 4342809-9 (Version None)
Quarter: 2004Q2

REPORT INFORMATION
  Report Type: 
  Country: None (occurrence: None)
  Receive Date: 20040416
  Receipt Date: 20040331
  Transmission Date: 20050107
  Serious: Yes (Hospitalization)
  Sender: FDA-Public Use
  Company Number: QUIN-244

PATIENT
  Age: 5 Year
  Sex: Male
  Weight: 23.2 kg

DRUGS (1)
  1. PRUDOXIN CREAM [Suspect]
     Indication: PRURITUS
     Dosage: 1 APPLICATION ONCE TP
     Route: 061
     Dates: start: 20040220, end: 20040220

REACTIONS (2)
  - OVERDOSE [None]
  - RESPIRATORY DEPRESSION [None]
